FAERS Safety Report 11896664 (Version 1)
Quarter: 2016Q1

REPORT INFORMATION
  Report Type: Spontaneous
  Country: US (occurrence: US)
  Receive Date: 20160107
  Receipt Date: 20160107
  Transmission Date: 20160526
  Serious: Yes (Other)
  Sender: FDA-Public Use
  Company Number: US-B.I. PHARMACEUTICALS,INC./RIDGEFIELD-2016-BI-00229BP

PATIENT
  Age: 68 Year
  Sex: Male
  Weight: 91 kg

DRUGS (2)
  1. DIOVAN [Concomitant]
     Active Substance: VALSARTAN
     Indication: BLOOD PRESSURE ABNORMAL
     Dosage: 165 MG
     Route: 048
  2. SPIRIVA [Suspect]
     Active Substance: TIOTROPIUM BROMIDE MONOHYDRATE
     Indication: CHRONIC OBSTRUCTIVE PULMONARY DISEASE
     Dosage: 18 MCG
     Route: 055
     Dates: start: 2006

REACTIONS (2)
  - Lung neoplasm malignant [Not Recovered/Not Resolved]
  - Leukaemia [Not Recovered/Not Resolved]

NARRATIVE: CASE EVENT DATE: 201509
